FAERS Safety Report 20576296 (Version 1)
Quarter: 2022Q1

REPORT INFORMATION
  Report Type: Spontaneous
  Country: US (occurrence: US)
  Receive Date: 20220310
  Receipt Date: 20220310
  Transmission Date: 20220423
  Serious: Yes (Other)
  Sender: FDA-Public Use
  Company Number: US-STRIDES ARCOLAB LIMITED-2022SP001512

PATIENT
  Age: 72 Year
  Sex: Male

DRUGS (10)
  1. PREDNISOLONE [Suspect]
     Active Substance: PREDNISOLONE
     Indication: Pseudolymphoma
     Dosage: UNK,TWO COURSES
     Route: 048
  2. PREDNISOLONE [Suspect]
     Active Substance: PREDNISOLONE
     Indication: Lymphoid tissue hyperplasia
     Dosage: UNK
     Route: 048
  3. METHOTREXATE [Suspect]
     Active Substance: METHOTREXATE
     Indication: Lymphoid tissue hyperplasia
     Dosage: UNK
     Route: 048
  4. METHOTREXATE [Suspect]
     Active Substance: METHOTREXATE
     Indication: Skin hyperplasia
     Dosage: UNK, 2.5 MONTHS AFTER THE FINAL RITUXIMAB THERAPY
     Route: 065
  5. DOXYCYCLINE [Suspect]
     Active Substance: DOXYCYCLINE
     Indication: Lymphoid tissue hyperplasia
     Dosage: UNK
     Route: 065
  6. DOXYCYCLINE [Suspect]
     Active Substance: DOXYCYCLINE
     Indication: Skin hyperplasia
  7. HYDROXYCHLOROQUINE [Suspect]
     Active Substance: HYDROXYCHLOROQUINE
     Indication: Lymphoid tissue hyperplasia
     Dosage: UNK
     Route: 065
  8. HYDROXYCHLOROQUINE [Suspect]
     Active Substance: HYDROXYCHLOROQUINE
     Indication: Skin hyperplasia
  9. NIACINAMIDE [Suspect]
     Active Substance: NIACINAMIDE
     Indication: Lymphoid tissue hyperplasia
     Dosage: UNK
     Route: 065
  10. NIACINAMIDE [Suspect]
     Active Substance: NIACINAMIDE
     Indication: Skin hyperplasia

REACTIONS (2)
  - Drug ineffective [Unknown]
  - Off label use [Unknown]
